FAERS Safety Report 8180269-0 (Version None)
Quarter: 2012Q1

REPORT INFORMATION
  Report Type: 
  Country: None (occurrence: None)
  Receive Date: 20120302
  Receipt Date: 20110906
  Transmission Date: 20120608
  Serious: No
  Sender: FDA-Public Use
  Company Number: US-GLAXOSMITHKLINE-A0943467A

PATIENT
  Age: 69 Year
  Sex: Female

DRUGS (2)
  1. OLUX E [Suspect]
     Indication: TRANSIENT ACANTHOLYTIC DERMATOSIS
     Route: 061
     Dates: start: 20110802
  2. DESOXIMETASONE [Concomitant]

REACTIONS (2)
  - PRODUCT QUALITY ISSUE [None]
  - BURNING SENSATION [None]
